FAERS Safety Report 10367699 (Version 2)
Quarter: 2014Q3

REPORT INFORMATION
  Report Type: Spontaneous
  Country: JP (occurrence: None)
  Receive Date: 20140805
  Receipt Date: 20140812
  Transmission Date: 20150326
  Serious: Yes (Other)
  Sender: FDA-Public Use
  Company Number: ABR_01744_2014

PATIENT
  Age: 65 Year
  Sex: Female

DRUGS (8)
  1. ERYTHROCIN [Suspect]
     Active Substance: ERYTHROMYCIN LACTOBIONATE
     Indication: BRONCHIECTASIS
     Route: 048
     Dates: start: 20100823, end: 20130908
  2. TEPRENONE [Concomitant]
     Active Substance: TEPRENONE
  3. CARBAZOCHROME SODIUM SULFONATE [Concomitant]
     Active Substance: CARBAZOCHROME SODIUM SULFONATE
  4. ACETAMINOPHEN. [Concomitant]
     Active Substance: ACETAMINOPHEN
  5. FUDOSTEINE [Concomitant]
     Active Substance: FUDOSTEINE
  6. INSULIN DETEMIR [Concomitant]
     Active Substance: INSULIN DETEMIR
  7. INSULIN ASPART [Concomitant]
     Active Substance: INSULIN ASPART
  8. CEFCAPENE PIVOXIL HYDROCHLORIDE [Concomitant]
     Active Substance: CEFCAPENE PIVOXIL HYDROCHLORIDE

REACTIONS (2)
  - Sinus tachycardia [None]
  - Dizziness [None]

NARRATIVE: CASE EVENT DATE: 20130909
